FAERS Safety Report 22229002 (Version 1)
Quarter: 2023Q2

REPORT INFORMATION
  Report Type: Spontaneous
  Country: US (occurrence: None)
  Receive Date: 20230418
  Receipt Date: 20230418
  Transmission Date: 20230722
  Serious: No
  Sender: FDA-Public Use
  Company Number: None

PATIENT
  Age: 83 Year
  Sex: Female
  Weight: 72.57 kg

DRUGS (8)
  1. BETAMETHASONE [Suspect]
     Active Substance: BETAMETHASONE
     Indication: Psoriasis
     Dosage: APPLY TO EARS 2-3 NIGHTS A WEEK AND WASH OFF IN THE MORNING?
     Dates: start: 202208
  2. BETAMETHASONE [Suspect]
     Active Substance: BETAMETHASONE
     Indication: Neurodermatitis
  3. BETAMETHASONE [Suspect]
     Active Substance: BETAMETHASONE
     Indication: Dermatitis
  4. BETAMETHASONE [Suspect]
     Active Substance: BETAMETHASONE
     Indication: Seborrhoeic dermatitis
  5. HUMIRA [Suspect]
     Active Substance: ADALIMUMAB
     Indication: Psoriasis
     Dosage: INJECT 40MG SUBCUTANEOUSLY EVERY 2 WEEKS AS DIRECTED.
     Route: 058
     Dates: start: 201907
  6. HUMIRA [Suspect]
     Active Substance: ADALIMUMAB
     Indication: Neurodermatitis
  7. HUMIRA [Suspect]
     Active Substance: ADALIMUMAB
     Indication: Dermatitis
  8. HUMIRA [Suspect]
     Active Substance: ADALIMUMAB
     Indication: Seborrhoeic dermatitis

REACTIONS (1)
  - Knee operation [None]
